FAERS Safety Report 21321056 (Version 1)
Quarter: 2022Q3

REPORT INFORMATION
  Report Type: Spontaneous
  Country: US (occurrence: US)
  Receive Date: 20220912
  Receipt Date: 20220912
  Transmission Date: 20221026
  Serious: Yes (Death, Hospitalization, Other)
  Sender: FDA-Public Use
  Company Number: US-NATCOUSA-2022-NATCOUSA-000078

PATIENT
  Age: 69 Year
  Sex: Male

DRUGS (1)
  1. IMATINIB MESYLATE [Suspect]
     Active Substance: IMATINIB MESYLATE
     Indication: Chronic myeloid leukaemia

REACTIONS (6)
  - Acute respiratory distress syndrome [Fatal]
  - Acute kidney injury [Fatal]
  - COVID-19 [Fatal]
  - Tumour lysis syndrome [Fatal]
  - Shock [Fatal]
  - Condition aggravated [Fatal]
